FAERS Safety Report 4381565-5 (Version None)
Quarter: 2004Q2

REPORT INFORMATION
  Report Type: 
  Country: None (occurrence: None)
  Receive Date: 20040616
  Receipt Date: 20040603
  Transmission Date: 20050107
  Serious: Yes (Life-Threatening, Hospitalization)
  Sender: FDA-Public Use
  Company Number: 2004-BP-03629BP

PATIENT
  Age: 69 Year
  Sex: Female
  Weight: 81.2 kg

DRUGS (15)
  1. MICARDIS [Suspect]
     Indication: CEREBROVASCULAR ACCIDENT
     Dosage: PO
     Route: 048
     Dates: start: 20030421
  2. MICARDIS [Suspect]
     Indication: MYOCARDIAL INFARCTION
     Dosage: PO
     Route: 048
     Dates: start: 20030421
  3. RAMIPRIL [Suspect]
     Indication: CEREBROVASCULAR ACCIDENT
     Dosage: PO
     Route: 048
     Dates: start: 20030421
  4. RAMIPRIL [Suspect]
     Indication: MYOCARDIAL INFARCTION
     Dosage: PO
     Route: 048
     Dates: start: 20030421
  5. VANCOMYCIN [Suspect]
  6. ATORVASTATI (ATORVASTATIN) [Concomitant]
  7. ISORDIL [Concomitant]
  8. METOPROLOL (METOPROLOL) [Concomitant]
  9. SYNTHROID [Concomitant]
  10. PROTONIX [Concomitant]
  11. WARFARIN SODIUM [Concomitant]
  12. LASIIX [Concomitant]
  13. HUMULIN 70/30 [Concomitant]
  14. REGULAR INSULIN [Concomitant]
  15. FERROUS GLUCONATE [Concomitant]

REACTIONS (3)
  - HAEMODIALYSIS [None]
  - MENTAL STATUS CHANGES [None]
  - RENAL FAILURE ACUTE [None]
